FAERS Safety Report 17870431 (Version 10)
Quarter: 2020Q4

REPORT INFORMATION
  Report Type: Spontaneous
  Country: ES (occurrence: ES)
  Receive Date: 20200608
  Receipt Date: 20201208
  Transmission Date: 20210113
  Serious: No
  Sender: FDA-Public Use
  Company Number: ES-JNJFOC-20200529873

PATIENT
  Age: 47 Year
  Sex: Female

DRUGS (15)
  1. DUROGESIC MATRIX [Suspect]
     Active Substance: FENTANYL
  2. DUROGESIC MATRIX [Suspect]
     Active Substance: FENTANYL
     Indication: PAIN
     Dosage: STRENGTH: 100.00 MCG/HR
     Route: 062
  3. DUROGESIC MATRIX [Suspect]
     Active Substance: FENTANYL
  4. DUROGESIC MATRIX [Suspect]
     Active Substance: FENTANYL
     Indication: PAIN
     Dosage: STRENGTH: 100.00 MCG/HR
     Route: 062
  5. DUROGESIC MATRIX [Suspect]
     Active Substance: FENTANYL
  6. DUROGESIC MATRIX [Suspect]
     Active Substance: FENTANYL
     Route: 062
  7. DUROGESIC MATRIX [Suspect]
     Active Substance: FENTANYL
  8. DUROGESIC MATRIX [Suspect]
     Active Substance: FENTANYL
  9. DUROGESIC MATRIX [Suspect]
     Active Substance: FENTANYL
  10. DUROGESIC MATRIX [Suspect]
     Active Substance: FENTANYL
  11. DUROGESIC MATRIX [Suspect]
     Active Substance: FENTANYL
  12. DUROGESIC MATRIX [Suspect]
     Active Substance: FENTANYL
  13. DUROGESIC MATRIX [Suspect]
     Active Substance: FENTANYL
  14. DUROGESIC MATRIX [Suspect]
     Active Substance: FENTANYL
     Indication: PAIN
     Dosage: 4 YEAR SINCE A 2 YEAR BREAK, 8 YEAR BEFORE THAT?STRENGTH: 100.00 MCG/HR?JKB4M00, EXPIRY 31/10/2021
     Route: 062
  15. DUROGESIC MATRIX [Suspect]
     Active Substance: FENTANYL

REACTIONS (9)
  - Product complaint [Unknown]
  - Product adhesion issue [Unknown]
  - Vomiting [Unknown]
  - Off label use [Unknown]
  - Withdrawal syndrome [Unknown]
  - Product administered at inappropriate site [Unknown]
  - Constipation [Not Recovered/Not Resolved]
  - Pruritus [Unknown]
  - Wrong technique in product usage process [Unknown]
